FAERS Safety Report 15417391 (Version 3)
Quarter: 2018Q4

REPORT INFORMATION
  Report Type: Spontaneous
  Country: DE (occurrence: DE)
  Receive Date: 20180924
  Receipt Date: 20181025
  Transmission Date: 20190204
  Serious: Yes (Death, Hospitalization, Other)
  Sender: FDA-Public Use
  Company Number: DE-MYLANLABS-2018M1069628

PATIENT
  Age: 8 Decade
  Sex: Male

DRUGS (20)
  1. VORICONAZOLE. [Suspect]
     Active Substance: VORICONAZOLE
     Indication: ANTIFUNGAL TREATMENT
     Dosage: 12 MG/KG, QD,DAILY DOSE: 12 MG/KG MILLIGRAM (S)/KILOGRAM EVERY DAY(6 MG/KG/DAY, BID, LOADING DOSE
     Route: 042
     Dates: start: 201409, end: 201409
  2. DECITABINE. [Concomitant]
     Active Substance: DECITABINE
     Indication: ACUTE MYELOID LEUKAEMIA
     Dosage: 20 MG/M2, QD DAY 1 TO 5
     Route: 042
     Dates: start: 2014
  3. ANTITHYMOCYTE IMMUNOGLOBULIN [Concomitant]
     Active Substance: THYMOCYTE IMMUNE GLOBULIN NOS
     Indication: BONE MARROW CONDITIONING REGIMEN
     Dosage: 30 MG/M2, QD, DAYS 1 AND 5
     Route: 042
     Dates: start: 201408
  4. FLUDARABINE PHOSPHATE. [Concomitant]
     Active Substance: FLUDARABINE PHOSPHATE
     Indication: ACUTE MYELOID LEUKAEMIA
     Dosage: 30 MG/M2/DAY, DAYS -6 TO -2
  5. CASPOFUNGIN [Suspect]
     Active Substance: CASPOFUNGIN
     Dosage: 70 MG, QD
     Route: 042
     Dates: start: 201409, end: 201409
  6. VORICONAZOLE. [Suspect]
     Active Substance: VORICONAZOLE
     Indication: ASPERGILLUS INFECTION
     Dosage: 8 MG/KG, QD,DAILY DOSE: 8MG/KG MILLIGRAM (S)/KILOGRAM EVERY DAY(4 MG/KG/DAY, BID)
     Route: 042
     Dates: start: 201409, end: 201409
  7. CYTARABINE. [Concomitant]
     Active Substance: CYTARABINE
     Indication: ACUTE MYELOID LEUKAEMIA
     Dosage: 2,000 MG/M2/DAY I.V. B.I.D., DAYS 1 AND 5
     Route: 042
     Dates: start: 201408
  8. MELPHALAN. [Concomitant]
     Active Substance: MELPHALAN
     Indication: ACUTE MYELOID LEUKAEMIA
     Dosage: 150 MG/M2, ON DAY 2
     Route: 042
  9. ETOPOSIDE. [Concomitant]
     Active Substance: ETOPOSIDE
     Indication: ACUTE MYELOID LEUKAEMIA
     Dosage: 100 MG/M2, QD, DAY 3 TO 7
     Route: 042
     Dates: start: 201405
  10. POSACONAZOLE [Suspect]
     Active Substance: POSACONAZOLE
     Indication: ANTIFUNGAL PROPHYLAXIS
     Dosage: 600 MG, QD,200 MG P.O. T.I.D.
     Route: 048
     Dates: start: 201405
  11. CYTARABINE. [Concomitant]
     Active Substance: CYTARABINE
     Dosage: 100 MG/M2/DAY, DAY 1 TO 7
     Route: 042
     Dates: start: 201405
  12. AMBISOME [Suspect]
     Active Substance: AMPHOTERICIN B
     Indication: ASPERGILLUS INFECTION
     Dosage: 3 MG/KG, QD
     Route: 042
  13. ANTITHYMOCYTE IMMUNOGLOBULIN [Concomitant]
     Active Substance: THYMOCYTE IMMUNE GLOBULIN NOS
     Indication: ACUTE MYELOID LEUKAEMIA
     Dosage: 10 MG/KG OF BODY WEIGHT/DAY, DAYS 5 TO 2
     Route: 042
  14. AMPHOTERICIN B. [Suspect]
     Active Substance: AMPHOTERICIN B
     Indication: ASPERGILLUS INFECTION
     Dosage: UNK
  15. MELPHALAN. [Concomitant]
     Active Substance: MELPHALAN
     Indication: BONE MARROW CONDITIONING REGIMEN
  16. CASPOFUNGIN [Suspect]
     Active Substance: CASPOFUNGIN
     Indication: ANTIFUNGAL TREATMENT
     Dosage: 200 MG, QD,50 MG, QD, DAILY DOSE: 200 MG MILLIGRAM (S) EVERY DAY
     Route: 042
     Dates: start: 201409
  17. AMPHOTERICIN B. [Suspect]
     Active Substance: AMPHOTERICIN B
     Indication: ANTIFUNGAL TREATMENT
     Dosage: 3 MG/KG, QD
     Route: 042
     Dates: start: 201409, end: 201409
  18. IDARUBICIN HYDROCHLORIDE. [Concomitant]
     Active Substance: IDARUBICIN HYDROCHLORIDE
     Indication: ACUTE MYELOID LEUKAEMIA
     Dosage: 12 MG/M2, QD DAYS 2,4 AND 6
     Route: 042
     Dates: start: 201405
  19. FLUDARABINE PHOSPHATE. [Concomitant]
     Active Substance: FLUDARABINE PHOSPHATE
     Indication: BONE MARROW CONDITIONING REGIMEN
  20. MITOXANTRONE [Concomitant]
     Active Substance: MITOXANTRONE HYDROCHLORIDE
     Dosage: 30 MG/M2/DAY I.V., DAYS -1 AND -5
     Route: 042

REACTIONS (11)
  - Drug ineffective [Fatal]
  - Multiple organ dysfunction syndrome [Unknown]
  - Aspergillus infection [Fatal]
  - Bronchopulmonary aspergillosis [Fatal]
  - C-reactive protein increased [Unknown]
  - Septic shock [Unknown]
  - Off label use [Unknown]
  - Cerebral aspergillosis [Fatal]
  - Abscess fungal [Unknown]
  - Febrile neutropenia [Unknown]
  - Drug resistance [Unknown]

NARRATIVE: CASE EVENT DATE: 201408
